FAERS Safety Report 23953762 (Version 1)
Quarter: 2024Q2

REPORT INFORMATION
  Report Type: Spontaneous
  Country: IT (occurrence: IT)
  Receive Date: 20240609
  Receipt Date: 20240609
  Transmission Date: 20240716
  Serious: Yes (Hospitalization, Other)
  Sender: FDA-Public Use
  Company Number: IT-UCBSA-2022061875

PATIENT
  Sex: Female

DRUGS (9)
  1. LACOSAMIDE [Suspect]
     Active Substance: LACOSAMIDE
     Indication: Epilepsy
     Dosage: 50 MILLIGRAM, 2X/DAY (BID)
     Route: 065
     Dates: start: 202206, end: 2022
  2. LACOSAMIDE [Suspect]
     Active Substance: LACOSAMIDE
     Dosage: 100 MILLIGRAM, 2X/DAY (BID) (
     Route: 065
     Dates: start: 20221013
  3. LACOSAMIDE [Suspect]
     Active Substance: LACOSAMIDE
     Dosage: 300 MILLIGRAM, ONCE DAILY (QD)
     Route: 065
  4. LACOSAMIDE [Suspect]
     Active Substance: LACOSAMIDE
     Dosage: UNK 200 MG, 56 FILM COATED TABLET
     Route: 065
     Dates: start: 2023
  5. LACOSAMIDE [Suspect]
     Active Substance: LACOSAMIDE
     Dosage: 350 MILLIGRAM, ONCE A DAY
     Route: 065
  6. LACOSAMIDE [Suspect]
     Active Substance: LACOSAMIDE
     Dosage: 200 MILLIGRAM, ONCE A DAY(
     Dates: start: 202311
  7. LACOSAMIDE [Suspect]
     Active Substance: LACOSAMIDE
     Dosage: 400 MILLIGRAM, ONCE A DAY
     Route: 065
     Dates: start: 20230721
  8. FYCOMPA [Suspect]
     Active Substance: PERAMPANEL
     Indication: Product used for unknown indication
     Dosage: 6 MILLIGRAM
     Route: 065
  9. CYMBALTA [Concomitant]
     Active Substance: DULOXETINE HYDROCHLORIDE
     Indication: Product used for unknown indication
     Dosage: 120 MILLIGRAM,2X 60 MILLIGRAM IN THE MORNING
     Route: 065

REACTIONS (26)
  - Hospitalisation [Unknown]
  - Seizure [Not Recovered/Not Resolved]
  - Epilepsy [Unknown]
  - Dizziness [Recovered/Resolved]
  - Insomnia [Unknown]
  - Nervousness [Unknown]
  - Somnolence [Unknown]
  - Tremor [Unknown]
  - Fear [Unknown]
  - Fall [Recovered/Resolved]
  - Movement disorder [Unknown]
  - Fatigue [Recovered/Resolved]
  - Speech disorder [Unknown]
  - Abdominal pain upper [Unknown]
  - Aphasia [Unknown]
  - Malaise [Recovered/Resolved]
  - Mental disorder [Unknown]
  - Headache [Unknown]
  - Influenza [Unknown]
  - Vomiting [Unknown]
  - Hypersomnia [Recovering/Resolving]
  - Viral infection [Unknown]
  - Intentional dose omission [Unknown]
  - Accidental overdose [Unknown]
  - Off label use [Unknown]
  - Wrong technique in product usage process [Unknown]

NARRATIVE: CASE EVENT DATE: 20221001
